FAERS Safety Report 8400591-X (Version None)
Quarter: 2012Q2

REPORT INFORMATION
  Report Type: 
  Country: None (occurrence: None)
  Receive Date: 20120531
  Receipt Date: 20120516
  Transmission Date: 20120825
  Serious: Yes (Other)
  Sender: FDA-Public Use
  Company Number: CHPA2012US011156

PATIENT
  Age: 65 Year
  Sex: Female

DRUGS (2)
  1. EXCEDRIN BACK \+ BODY CAPLETS [Suspect]
     Indication: MYALGIA
     Dosage: 2 DF, A WEEK
     Route: 048
  2. ACETAMINOPHEN, ASPIRIN AND CAFFEINE [Concomitant]
     Dosage: UNK, UNK

REACTIONS (4)
  - OFF LABEL USE [None]
  - BACK PAIN [None]
  - INTERVERTEBRAL DISC DISORDER [None]
  - UNDERDOSE [None]
